FAERS Safety Report 14979782 (Version 6)
Quarter: 2019Q2

REPORT INFORMATION
  Report Type: Spontaneous
  Country: US (occurrence: US)
  Receive Date: 20180606
  Receipt Date: 20190625
  Transmission Date: 20190711
  Serious: No
  Sender: FDA-Public Use
  Company Number: US-PFIZER INC-2018232118

PATIENT
  Age: 54 Year
  Sex: Female

DRUGS (1)
  1. XELJANZ XR [Suspect]
     Active Substance: TOFACITINIB CITRATE
     Indication: RHEUMATOID ARTHRITIS
     Dosage: 11 MG, DAILY [TAKE 1 TABLET BY MOUTH DAILY]
     Route: 048
     Dates: start: 201805

REACTIONS (9)
  - Pain in extremity [Not Recovered/Not Resolved]
  - Product dose omission [Unknown]
  - Diarrhoea [Unknown]
  - Nausea [Unknown]
  - Paraesthesia [Not Recovered/Not Resolved]
  - Vomiting [Unknown]
  - Drug ineffective [Unknown]
  - Hypoaesthesia [Not Recovered/Not Resolved]
  - Urinary tract infection [Unknown]

NARRATIVE: CASE EVENT DATE: 2018
